FAERS Safety Report 12456176 (Version 1)
Quarter: 2016Q2

REPORT INFORMATION
  Report Type: Report from Study
  Country: CA (occurrence: CA)
  Receive Date: 20160610
  Receipt Date: 20160610
  Transmission Date: 20160815
  Serious: Yes (Other)
  Sender: FDA-Public Use
  Company Number: CA-HLSUS-2016-CA-000083

PATIENT
  Age: 71 Year
  Sex: Male

DRUGS (1)
  1. CLOZARIL [Suspect]
     Active Substance: CLOZAPINE
     Dosage: 37.5 MG DAILY
     Route: 048
     Dates: start: 20160224, end: 20160418

REACTIONS (1)
  - Delirium [Unknown]

NARRATIVE: CASE EVENT DATE: 2016
